FAERS Safety Report 15782909 (Version 1)
Quarter: 2019Q1

REPORT INFORMATION
  Report Type: Spontaneous
  Country: US (occurrence: US)
  Receive Date: 20190102
  Receipt Date: 20190102
  Transmission Date: 20190417
  Serious: No
  Sender: FDA-Public Use
  Company Number: US-PERRIGO-18US006032

PATIENT
  Sex: Female

DRUGS (1)
  1. TIOCONAZOLE. [Suspect]
     Active Substance: TIOCONAZOLE
     Indication: VULVOVAGINAL MYCOTIC INFECTION
     Dosage: 300 MG, SINGLE
     Route: 067
     Dates: start: 20180504, end: 20180504

REACTIONS (4)
  - Vaginal discharge [Unknown]
  - Vulvovaginal discomfort [Unknown]
  - Vulvovaginal pruritus [Unknown]
  - Drug ineffective [Unknown]

NARRATIVE: CASE EVENT DATE: 201805
